FAERS Safety Report 5800557-X (Version None)
Quarter: 2008Q3

REPORT INFORMATION
  Report Type: 
  Country: None (occurrence: None)
  Receive Date: 20080703
  Receipt Date: 20080627
  Transmission Date: 20090109
  Serious: Yes (Life-Threatening)
  Sender: FDA-Public Use
  Company Number: IT-PFIZER INC-2008054664

PATIENT
  Sex: Male

DRUGS (1)
  1. ALPRAZOLAM [Suspect]

REACTIONS (4)
  - EOSINOPHILIA [None]
  - HEPATIC FAILURE [None]
  - HEPATITIS ACUTE [None]
  - STEVENS-JOHNSON SYNDROME [None]
